FAERS Safety Report 17668694 (Version 2)
Quarter: 2020Q2

REPORT INFORMATION
  Report Type: Spontaneous
  Country: US (occurrence: US)
  Receive Date: 20200415
  Receipt Date: 20200417
  Transmission Date: 20200713
  Serious: No
  Sender: FDA-Public Use
  Company Number: US-GLAXOSMITHKLINE-US2020064729

PATIENT
  Age: 92 Year
  Sex: Female

DRUGS (2)
  1. ABREVA [Suspect]
     Active Substance: DOCOSANOL
     Indication: ORAL HERPES
     Dosage: UNK,(4 TIMES A DAY TOO AND  6 DAYS)
     Dates: start: 202001
  2. ABREVA [Suspect]
     Active Substance: DOCOSANOL
     Dosage: UNK(4 TIMES A DAY TOO, 6 DAYS)
     Dates: start: 202004

REACTIONS (5)
  - Product complaint [Unknown]
  - Accidental exposure to product [Unknown]
  - Drug ineffective [Unknown]
  - Inappropriate schedule of product administration [Unknown]
  - Incorrect product administration duration [Unknown]
